FAERS Safety Report 13606332 (Version 2)
Quarter: 2017Q2

REPORT INFORMATION
  Report Type: Report from Study
  Country: US (occurrence: US)
  Receive Date: 20170602
  Receipt Date: 20170609
  Transmission Date: 20170830
  Serious: Yes (Hospitalization, Other)
  Sender: FDA-Public Use
  Company Number: US-GILEAD-2017-0275649

PATIENT
  Age: 74 Year
  Sex: Female

DRUGS (14)
  1. VITAMINS WITH MINERALS [Concomitant]
     Active Substance: MINERALS\VITAMINS
  2. AMBRISENTAN [Suspect]
     Active Substance: AMBRISENTAN
     Indication: PULMONARY HYPERTENSION
     Dosage: 10 MG, QD
     Route: 065
  3. SILDENAFIL. [Suspect]
     Active Substance: SILDENAFIL
     Indication: PRODUCT USED FOR UNKNOWN INDICATION
     Dosage: UNK
     Route: 065
  4. LEVOTHYROXINE. [Concomitant]
     Active Substance: LEVOTHYROXINE
  5. CHOLESTYRAMINE. [Concomitant]
     Active Substance: CHOLESTYRAMINE
  6. ALPRAZOLAM. [Concomitant]
     Active Substance: ALPRAZOLAM
  7. VITAMIN C [Concomitant]
     Active Substance: ASCORBIC ACID
  8. FUROSEMIDE. [Concomitant]
     Active Substance: FUROSEMIDE
  9. METHOTREXATE. [Concomitant]
     Active Substance: METHOTREXATE
  10. CALCITRIOL. [Concomitant]
     Active Substance: CALCITRIOL
  11. VITAMIN D                          /00107901/ [Concomitant]
     Active Substance: ERGOCALCIFEROL
  12. POTASSIUM CHLORIDE. [Concomitant]
     Active Substance: POTASSIUM CHLORIDE
  13. VALSARTAN. [Concomitant]
     Active Substance: VALSARTAN
  14. ASPIRIN                            /00002701/ [Concomitant]
     Active Substance: ASPIRIN

REACTIONS (8)
  - Fluid retention [Recovered/Resolved]
  - Headache [Unknown]
  - Asthenia [Unknown]
  - Unevaluable event [Recovered/Resolved]
  - Swelling [Unknown]
  - Respiratory failure [Recovered/Resolved]
  - Fatigue [Unknown]
  - Fluid retention [Unknown]

NARRATIVE: CASE EVENT DATE: 20170423
